FAERS Safety Report 9401805 (Version 1)
Quarter: 2013Q3

REPORT INFORMATION
  Report Type: Spontaneous
  Country: US (occurrence: US)
  Receive Date: 20130716
  Receipt Date: 20130716
  Transmission Date: 20140515
  Serious: Yes (Hospitalization)
  Sender: FDA-Public Use
  Company Number: US-SANOFI-AVENTIS-2013SA070501

PATIENT
  Age: 51 Year
  Sex: Female

DRUGS (2)
  1. LANTUS SOLOSTAR [Suspect]
     Indication: TYPE 2 DIABETES MELLITUS
     Route: 051
     Dates: start: 2008, end: 201208
  2. SOLOSTAR [Suspect]
     Indication: TYPE 2 DIABETES MELLITUS
     Dates: start: 2008

REACTIONS (6)
  - Limb injury [Unknown]
  - Hypoaesthesia [Unknown]
  - Visual impairment [Unknown]
  - Pain in extremity [Unknown]
  - Localised infection [Unknown]
  - Oedema peripheral [Unknown]
